FAERS Safety Report 20898604 (Version 2)
Quarter: 2022Q2

REPORT INFORMATION
  Report Type: Spontaneous
  Country: FI (occurrence: FI)
  Receive Date: 20220601
  Receipt Date: 20220624
  Transmission Date: 20220720
  Serious: Yes (Other)
  Sender: FDA-Public Use
  Company Number: FI-AUROBINDO-AUR-APL-2022-019155

PATIENT
  Age: 44 Year
  Sex: Male

DRUGS (2)
  1. OLANZAPINE [Suspect]
     Active Substance: OLANZAPINE
     Indication: Hypnotherapy
     Dosage: 2.5 MILLIGRAM, ONCE A DAY
     Route: 048
     Dates: end: 20220515
  2. OLANZAPINE [Suspect]
     Active Substance: OLANZAPINE
     Dosage: 1 DOSAGE FORM, ONCE A DAY
     Route: 048

REACTIONS (3)
  - Erectile dysfunction [Not Recovered/Not Resolved]
  - Sensory loss [Not Recovered/Not Resolved]
  - Panic reaction [Not Recovered/Not Resolved]
